FAERS Safety Report 5744955-1 (Version None)
Quarter: 2008Q2

REPORT INFORMATION
  Report Type: 
  Country: None (occurrence: None)
  Receive Date: 20080521
  Receipt Date: 20080514
  Transmission Date: 20081010
  Serious: Yes (Hospitalization)
  Sender: FDA-Public Use
  Company Number: CH-JNJFOC-20080502531

PATIENT
  Age: 73 Year
  Sex: Female

DRUGS (7)
  1. HALDOL DECANOAT [Suspect]
     Route: 030
  2. HALDOL DECANOAT [Suspect]
     Route: 030
  3. HALDOL DECANOAT [Suspect]
     Route: 030
  4. HALDOL DECANOAT [Suspect]
     Route: 030
  5. HALDOL DECANOAT [Suspect]
     Route: 030
  6. HALDOL DECANOAT [Suspect]
     Indication: SCHIZOPHRENIA, CATATONIC TYPE
     Route: 030
  7. AKINETON [Interacting]
     Indication: DRUG USE FOR UNKNOWN INDICATION
     Route: 048

REACTIONS (6)
  - ABNORMAL BEHAVIOUR [None]
  - AGGRESSION [None]
  - AGITATION [None]
  - DRUG INTERACTION [None]
  - NEGATIVISM [None]
  - THINKING ABNORMAL [None]
